FAERS Safety Report 9581359 (Version 1)
Quarter: 2013Q4

REPORT INFORMATION
  Report Type: Spontaneous
  Country: IT (occurrence: IT)
  Receive Date: 20131002
  Receipt Date: 20131002
  Transmission Date: 20140711
  Serious: Yes (Hospitalization)
  Sender: FDA-Public Use
  Company Number: IT-BAYER-2013-118979

PATIENT
  Age: 39 Year
  Sex: Female

DRUGS (1)
  1. ASPIRINA [Suspect]
     Indication: INFLUENZA LIKE ILLNESS
     Dosage: 500 MG, ONCE
     Route: 048
     Dates: start: 20130824, end: 20130824

REACTIONS (5)
  - Chromaturia [Recovered/Resolved with Sequelae]
  - Gastritis [Recovered/Resolved with Sequelae]
  - Haemoptysis [Recovered/Resolved with Sequelae]
  - Abdominal pain [Recovered/Resolved with Sequelae]
  - Abdominal distension [Recovered/Resolved with Sequelae]
